FAERS Safety Report 5815751-1 (Version None)
Quarter: 2008Q3

REPORT INFORMATION
  Report Type: 
  Country: None (occurrence: None)
  Receive Date: 20080721
  Receipt Date: 20080422
  Transmission Date: 20090109
  Serious: Yes (Death, Life-Threatening, Hospitalization)
  Sender: FDA-Public Use
  Company Number: US-BAYER-200810699GPV

PATIENT
  Age: 60 Year
  Sex: Male

DRUGS (2)
  1. CAMPATH [Suspect]
     Indication: B-CELL SMALL LYMPHOCYTIC LYMPHOMA
     Dosage: TOTAL DAILY DOSE: 30 MG
     Route: 058
     Dates: start: 20070723, end: 20071005
  2. CAMPATH [Suspect]
     Dosage: TOTAL DAILY DOSE: 10 MG
     Route: 058
     Dates: start: 20071010, end: 20071123

REACTIONS (4)
  - LARGE INTESTINE PERFORATION [None]
  - PERITONITIS [None]
  - POLYMYOSITIS [None]
  - SEPTIC SHOCK [None]
